FAERS Safety Report 19825650 (Version 2)
Quarter: 2021Q3

REPORT INFORMATION
  Report Type: Report from Study
  Country: None (occurrence: US)
  Receive Date: 20210914
  Receipt Date: 20210921
  Transmission Date: 20211014
  Serious: Yes (Other)
  Sender: FDA-Public Use
  Company Number: US-ABBVIE-21K-163-4075214-00

PATIENT
  Sex: Female

DRUGS (1)
  1. IMBRUVICA [Suspect]
     Active Substance: IBRUTINIB
     Indication: CHRONIC LYMPHOCYTIC LEUKAEMIA
     Route: 048
     Dates: start: 20210830, end: 2021

REACTIONS (3)
  - Macular degeneration [Not Recovered/Not Resolved]
  - Contusion [Not Recovered/Not Resolved]
  - Investigation abnormal [Unknown]

NARRATIVE: CASE EVENT DATE: 2021
